FAERS Safety Report 14337340 (Version 2)
Quarter: 2018Q2

REPORT INFORMATION
  Report Type: Report from Study
  Country: BE (occurrence: BE)
  Receive Date: 20171229
  Receipt Date: 20180510
  Transmission Date: 20180711
  Serious: Yes (Other)
  Sender: FDA-Public Use
  Company Number: BE-PFIZER INC-2017547822

PATIENT
  Age: 78 Year
  Sex: Female
  Weight: 50 kg

DRUGS (14)
  1. LITICAN /00690801/ [Concomitant]
     Active Substance: ALIZAPRIDE
     Dosage: UNK
     Route: 065
     Dates: start: 20160620
  2. PACLITAXEL. [Suspect]
     Active Substance: PACLITAXEL
     Indication: OVARIAN CANCER
     Dosage: 3 WEEKS, ONE STOP WEEK,MOST RECENT DOSE PRIOR TO ONSET OF THIRD EPISODE OF NEUTROPENIA 08DEC2016MO
     Route: 042
     Dates: start: 20160629, end: 20160720
  3. PANTOMED /01263204/ [Concomitant]
     Active Substance: PANTOPRAZOLE SODIUM
     Dosage: UNK
     Route: 065
     Dates: start: 20160620
  4. REMERGON [Concomitant]
     Active Substance: MIRTAZAPINE
     Dosage: UNK
     Route: 065
     Dates: start: 20160620
  5. EMCONCOR [Concomitant]
     Active Substance: BISOPROLOL FUMARATE
  6. CARBOPLATIN. [Suspect]
     Active Substance: CARBOPLATIN
     Indication: OVARIAN CANCER
     Dosage: UNK UNK, EVERY 3 WEEKS /2 AUC 3 WEEKS, ONE STOP MOST RECENT DOSE PRIOR TO ONSET OF THIRD EPISODE OF
     Route: 042
     Dates: start: 20160629, end: 20160727
  7. URFADYN [Concomitant]
     Active Substance: NIFURTOINOL
     Indication: URINARY TRACT INFECTION
     Dosage: UNK
     Route: 065
     Dates: start: 20161005, end: 201701
  8. AMOXICILLINE /00249602/ [Concomitant]
     Active Substance: AMOXICILLIN
     Indication: URINARY TRACT INFECTION
     Dosage: UNK
     Route: 065
     Dates: start: 20161005, end: 20161015
  9. ZOLPIDEM [Concomitant]
     Active Substance: ZOLPIDEM\ZOLPIDEM TARTRATE
     Dosage: UNK
     Route: 065
     Dates: start: 20160620
  10. LASIX [Concomitant]
     Active Substance: FUROSEMIDE
  11. AVASTIN [Suspect]
     Active Substance: BEVACIZUMAB
     Indication: OVARIAN CANCER
     Dosage: 690 MG, EVERY 3 WEEKS
     Route: 042
     Dates: start: 20160629
  12. INNOHEP [Concomitant]
     Active Substance: TINZAPARIN SODIUM
     Dosage: UNK
     Route: 065
     Dates: start: 20160620, end: 201611
  13. TRADONAL [Concomitant]
     Active Substance: TRAMADOL HYDROCHLORIDE
     Dosage: UNK
     Route: 065
     Dates: start: 20160620
  14. TEMESTA (BELGIUM) [Concomitant]

REACTIONS (11)
  - Toothache [Recovered/Resolved]
  - Urinary tract infection [Recovered/Resolved]
  - Epistaxis [Recovered/Resolved]
  - Condition aggravated [Recovered/Resolved]
  - Polyneuropathy [Recovering/Resolving]
  - Mucosal inflammation [Recovered/Resolved]
  - Fatigue [Recovering/Resolving]
  - Neutropenia [Recovered/Resolved]
  - Tinnitus [Recovered/Resolved]
  - Hypertension [Recovered/Resolved]
  - Constipation [Recovered/Resolved]

NARRATIVE: CASE EVENT DATE: 20160727
